FAERS Safety Report 8138407-1 (Version None)
Quarter: 2012Q1

REPORT INFORMATION
  Report Type: 
  Country: None (occurrence: None)
  Receive Date: 20120215
  Receipt Date: 20120210
  Transmission Date: 20120608
  Serious: Yes (Hospitalization)
  Sender: FDA-Public Use
  Company Number: FR-BAYER-201039737GPV

PATIENT
  Age: 68 Year
  Sex: Male
  Weight: 92 kg

DRUGS (21)
  1. IMODIUM [Concomitant]
     Dosage: 6 DF (DAILY DOSE), QD, ORAL
     Route: 048
     Dates: start: 20091101, end: 20100806
  2. DEXERYL [CHLORPHENAM MAL,DEXTROMET HBR,GUAIF,PHENYLEPHR HCL] [Concomitant]
     Dosage: 2 APPLICATIONS
     Dates: start: 20100112
  3. LASIX [Concomitant]
     Dosage: 10 MG, QD
     Dates: start: 20110901
  4. ACETAMINOPHEN [Concomitant]
     Dosage: UNK UNK, PRN
     Dates: start: 20111201
  5. IMODIUM [Concomitant]
     Dosage: UNK, PRN
     Dates: start: 20111001
  6. DUPHALAC [Concomitant]
     Dosage: 60 G (DAILY DOSE), ,
     Dates: start: 20100125, end: 20100201
  7. ARIXTRA [Concomitant]
     Dosage: 7.5 MG (DAILY DOSE), QD,
     Dates: start: 20100112, end: 20100215
  8. SORAFENIB [Suspect]
     Dosage: 400 MG (DAILY DOSE), QD, ORAL
     Route: 048
     Dates: start: 20100214, end: 20100322
  9. SORAFENIB [Suspect]
     Dosage: 400 MG, QD
     Route: 048
     Dates: start: 20101005
  10. PROPRANOLOL [Concomitant]
     Dosage: 120 MG (DAILY DOSE), , ORAL
     Route: 048
     Dates: start: 20091021
  11. SORAFENIB [Suspect]
     Indication: HEPATIC NEOPLASM MALIGNANT
     Dosage: 800 MG (DAILY DOSE), BID, ORAL
     Route: 048
     Dates: start: 20091021, end: 20091222
  12. NEXIUM [Concomitant]
     Dosage: 20 MG, QD
     Dates: start: 20110501
  13. RAMIPRIL [Concomitant]
     Dosage: 5 MG (DAILY DOSE)
     Dates: start: 20050801
  14. HUMALOG [Concomitant]
     Dosage: 100 IU, QD
     Dates: start: 20100712
  15. SORAFENIB [Suspect]
     Dosage: 600 MG (DAILY DOSE), QD, ORAL
     Route: 048
     Dates: start: 20100112, end: 20100125
  16. SORAFENIB [Suspect]
     Dosage: 400 MG (DAILY DOSE), QD, ORAL
     Route: 048
     Dates: start: 20091229, end: 20100111
  17. NEXIUM [Concomitant]
     Dosage: 40 MG (DAILY DOSE), QD,
     Dates: start: 20080730
  18. ALUMINUM HYDROXIDE AND MAGNESIUM TRISILICATE [Concomitant]
     Dosage: 4 BAGS
     Dates: start: 20091130, end: 20100501
  19. AMLODIPINE BESYLATE [Concomitant]
     Dosage: 5 MG, QD
     Dates: start: 20100201
  20. ALDACTONE [Concomitant]
     Dosage: 25 MG, QD
     Dates: start: 20110901
  21. PRIMPERAN TAB [Concomitant]
     Dosage: 10 MG, QD
     Dates: start: 20111001

REACTIONS (2)
  - GENERALISED OEDEMA [None]
  - PNEUMOTHORAX [None]
